FAERS Safety Report 13623732 (Version 2)
Quarter: 2017Q2

REPORT INFORMATION
  Report Type: Report from Study
  Country: FR (occurrence: FR)
  Receive Date: 20170608
  Receipt Date: 20170623
  Transmission Date: 20170830
  Serious: Yes (Death, Other)
  Sender: FDA-Public Use
  Company Number: FR-ROCHE-1944721

PATIENT
  Age: 63 Year
  Sex: Male

DRUGS (5)
  1. CISPLATINE [Suspect]
     Active Substance: CISPLATIN
     Indication: TRANSITIONAL CELL CARCINOMA
     Route: 042
     Dates: start: 20170529
  2. METHOTREXATE. [Suspect]
     Active Substance: METHOTREXATE
     Indication: TRANSITIONAL CELL CARCINOMA
     Route: 042
     Dates: start: 20170529
  3. DOXORUBICINE [Suspect]
     Active Substance: DOXORUBICIN
     Indication: TRANSITIONAL CELL CARCINOMA
     Route: 042
     Dates: start: 20170529
  4. VINBLASTINE SULFATE. [Suspect]
     Active Substance: VINBLASTINE SULFATE
     Indication: TRANSITIONAL CELL CARCINOMA
     Route: 042
     Dates: start: 20170529
  5. ATEZOLIZUMAB [Suspect]
     Active Substance: ATEZOLIZUMAB
     Indication: TRANSITIONAL CELL CARCINOMA
     Dosage: ON 03/APR/2017 AND 24/APR/2017, THE PATIENT RECEIVED SUBSEQUENT INJECTIONS OF ATEZOLIZUMAB.
     Route: 042
     Dates: start: 20170313, end: 201705

REACTIONS (4)
  - Brain death [Fatal]
  - Cardio-respiratory arrest [Fatal]
  - Generalised oedema [Not Recovered/Not Resolved]
  - Ejection fraction decreased [Not Recovered/Not Resolved]

NARRATIVE: CASE EVENT DATE: 20170530
